FAERS Safety Report 5632528-0 (Version None)
Quarter: 2008Q1

REPORT INFORMATION
  Report Type: 
  Country: None (occurrence: None)
  Receive Date: 20080131
  Receipt Date: 20071025
  Transmission Date: 20080703
  Serious: No
  Sender: FDA-Public Use
  Company Number: 163-21880-07100630

PATIENT
  Age: 60 Year
  Sex: Male

DRUGS (4)
  1. REVLIMID [Suspect]
     Indication: MULTIPLE MYELOMA
     Dosage: 15, 25 MG, DAILY X 21 DAYS, ORAL
     Route: 048
     Dates: start: 20070228, end: 20070501
  2. REVLIMID [Suspect]
     Indication: MULTIPLE MYELOMA
     Dosage: 15, 25 MG, DAILY X 21 DAYS, ORAL
     Route: 048
     Dates: start: 20070529
  3. ASPIRIN [Suspect]
     Indication: DRUG USE FOR UNKNOWN INDICATION
     Dosage: 81 MG, DAILY
  4. DEXAMETHASONE TAB [Concomitant]

REACTIONS (4)
  - DEAFNESS [None]
  - NEUROPATHY PERIPHERAL [None]
  - PROSTATE CANCER [None]
  - TINNITUS [None]
